FAERS Safety Report 6570629-3 (Version None)
Quarter: 2010Q1

REPORT INFORMATION
  Report Type: 
  Country: None (occurrence: None)
  Receive Date: 20100204
  Receipt Date: 20100120
  Transmission Date: 20100710
  Serious: Yes (Congenital Anomaly, Other)
  Sender: FDA-Public Use
  Company Number: FR-PFIZER INC-2009267483

PATIENT
  Sex: Male
  Weight: 3.25 kg

DRUGS (8)
  1. LYRICA [Suspect]
     Dosage: 300 MG, 2X/DAY
     Route: 064
     Dates: start: 20070101, end: 20090829
  2. SKENAN [Suspect]
     Dosage: 80 MG, 2X/DAY
     Route: 064
     Dates: start: 20070101, end: 20090302
  3. MYOLASTAN [Suspect]
     Dosage: 50MG DAILY
     Route: 064
     Dates: start: 20070101, end: 20080829
  4. SECTRAL [Suspect]
     Dosage: 40MG
     Route: 064
     Dates: start: 20070101, end: 20081127
  5. SECTRAL [Suspect]
     Dosage: ^30MG/D^
     Route: 048
     Dates: start: 20081101
  6. TRANDATE [Suspect]
     Dosage: ^1/D^
     Route: 064
     Dates: start: 20081101, end: 20090401
  7. PROZAC [Suspect]
     Dosage: 20MG DAILY
     Route: 064
     Dates: start: 20070701
  8. ACTISKENAN [Concomitant]
     Dosage: UNK
     Route: 064

REACTIONS (3)
  - DRUG EXPOSURE DURING PREGNANCY [None]
  - INFANTILE SPASMS [None]
  - PIERRE ROBIN SYNDROME [None]
